FAERS Safety Report 5274707-0 (Version None)
Quarter: 2007Q1

REPORT INFORMATION
  Report Type: 
  Country: None (occurrence: None)
  Receive Date: 20070320
  Receipt Date: 20070312
  Transmission Date: 20070707
  Serious: Yes (Disabling)
  Sender: FDA-Public Use
  Company Number: 234686

PATIENT
  Age: 78 Year
  Sex: Female

DRUGS (3)
  1. LUCENTIS [Suspect]
     Indication: MACULAR DEGENERATION
     Dosage: 0.05 ML
     Dates: start: 20060710
  2. VIGAMOX [Concomitant]
  3. BETADINE [Concomitant]

REACTIONS (6)
  - EYE PRURITUS [None]
  - FACIAL PAIN [None]
  - IMPAIRED WORK ABILITY [None]
  - RHINORRHOEA [None]
  - SWELLING [None]
  - VISUAL ACUITY REDUCED [None]
